FAERS Safety Report 19189659 (Version 1)
Quarter: 2021Q2

REPORT INFORMATION
  Report Type: Other
  Country: DE (occurrence: DE)
  Receive Date: 20210428
  Receipt Date: 20210428
  Transmission Date: 20210717
  Serious: Yes (Other)
  Sender: FDA-Public Use
  Company Number: DE-ROCHE-2815067

PATIENT
  Age: 55 Year
  Sex: Female

DRUGS (2)
  1. IBANDRONIC ACID. [Suspect]
     Active Substance: IBANDRONIC ACID
     Indication: BONE MARROW OEDEMA
     Route: 042
  2. TERIPARATIDE [Suspect]
     Active Substance: TERIPARATIDE
     Indication: HYPOPHOSPHATASIA
     Route: 065

REACTIONS (3)
  - Off label use [Unknown]
  - Condition aggravated [Recovered/Resolved]
  - Bone marrow oedema [Recovered/Resolved]
